FAERS Safety Report 8814704 (Version 1)
Quarter: 2012Q4

REPORT INFORMATION
  Report Type: 
  Country: US (occurrence: US)
  Receive Date: 20120928
  Receipt Date: 20120928
  Transmission Date: 20130627
  Serious: No
  Sender: FDA-Public Use
  Company Number: US-GLAXOSMITHKLINE-A0976276A

PATIENT
  Age: 28 Year
  Sex: Male
  Weight: 70 kg

DRUGS (3)
  1. LAMICTAL [Suspect]
     Indication: BIPOLAR DISORDER
     Route: 048
     Dates: start: 201009
  2. NORTRIPTYLINE [Concomitant]
     Dates: start: 200911
  3. LITHIUM CARBONATE [Concomitant]
     Dates: start: 200801

REACTIONS (12)
  - Drug administration error [Unknown]
  - Agitation [Recovered/Resolved]
  - Insomnia [Recovered/Resolved]
  - Paranoia [Recovered/Resolved]
  - Hypervigilance [Recovered/Resolved]
  - Feeling abnormal [Recovered/Resolved]
  - Energy increased [Recovered/Resolved]
  - Discomfort [Recovered/Resolved]
  - Panic reaction [Recovered/Resolved]
  - Poor quality sleep [Recovered/Resolved]
  - Restlessness [Recovered/Resolved]
  - Unevaluable event [Recovered/Resolved]
